FAERS Safety Report 5283038-4 (Version None)
Quarter: 2007Q1

REPORT INFORMATION
  Report Type: 
  Country: None (occurrence: None)
  Receive Date: 20070328
  Receipt Date: 20070328
  Transmission Date: 20070707
  Serious: Yes (Hospitalization)
  Sender: FDA-Public Use
  Company Number: None

PATIENT
  Age: 51 Year
  Sex: Male
  Weight: 79 kg

DRUGS (2)
  1. ZOMETA [Suspect]
     Indication: BRAIN NEOPLASM
     Dosage: 4MG Q12 WEEKS IV
     Route: 042
     Dates: start: 20070319
  2. ZOMETA [Suspect]
     Indication: OSTEOPOROSIS
     Dosage: 4MG Q12 WEEKS IV
     Route: 042
     Dates: start: 20070319

REACTIONS (4)
  - CHILLS [None]
  - MENTAL STATUS CHANGES [None]
  - PYREXIA [None]
  - SOMNOLENCE [None]
